FAERS Safety Report 5586796-4 (Version None)
Quarter: 2008Q1

REPORT INFORMATION
  Report Type: 
  Country: None (occurrence: None)
  Receive Date: 20080110
  Receipt Date: 20080102
  Transmission Date: 20080703
  Serious: Yes (Other)
  Sender: FDA-Public Use
  Company Number: US-PURDUE-USA_2008_0030937

PATIENT
  Age: 50 Year
  Sex: Female

DRUGS (3)
  1. OXYCONTIN [Suspect]
     Indication: PAIN
     Dosage: 40 MG, Q12H
     Dates: start: 20071127, end: 20071226
  2. MSIR [Suspect]
     Indication: PAIN
     Dosage: 15 MG, UNK
     Dates: end: 20071226
  3. SOMA [Suspect]
     Indication: PAIN
     Dosage: 350 MG, QID
     Dates: end: 20071226

REACTIONS (3)
  - MULTIPLE DRUG OVERDOSE [None]
  - SUICIDAL IDEATION [None]
  - SUICIDE ATTEMPT [None]
